FAERS Safety Report 11445726 (Version 1)
Quarter: 2015Q3

REPORT INFORMATION
  Report Type: Spontaneous
  Country: CH (occurrence: CH)
  Receive Date: 20150902
  Receipt Date: 20150902
  Transmission Date: 20151125
  Serious: Yes (Hospitalization)
  Sender: FDA-Public Use
  Company Number: CH-PFIZER INC-2015286284

PATIENT
  Age: 79 Year
  Sex: Female

DRUGS (9)
  1. ZYLORIC [Concomitant]
     Active Substance: ALLOPURINOL
     Dosage: 300 MG, ALTERNATE DAY
  2. ASPIRIN CARDIO [Concomitant]
     Active Substance: ASPIRIN
     Dosage: 100 MG, 1X/DAY
  3. PANTOZOL [Suspect]
     Active Substance: PANTOPRAZOLE SODIUM
     Dosage: 20 MG, 1X/DAY
  4. JAKAFI [Suspect]
     Active Substance: RUXOLITINIB
     Indication: MYELOFIBROSIS
     Dosage: 15 MG, 2X/DAY
     Route: 048
     Dates: end: 20150511
  5. ESIDREX [Suspect]
     Active Substance: HYDROCHLOROTHIAZIDE
     Dosage: 12.5 MG (HALF OF 25 MG), 2X/DAY
     Route: 048
     Dates: end: 20150511
  6. GLUCOPHAGE [Concomitant]
     Active Substance: METFORMIN HYDROCHLORIDE
     Dosage: 500 MG, 1X/DAY
     Dates: end: 20150511
  7. PANTOZOL [Suspect]
     Active Substance: PANTOPRAZOLE SODIUM
     Dosage: 40 MG, UNK
     Route: 042
     Dates: start: 20150514
  8. JAKAFI [Suspect]
     Active Substance: RUXOLITINIB
     Dosage: 15 UNK, UNK
     Route: 048
     Dates: start: 20150515, end: 20150518
  9. ALDACTONE [Suspect]
     Active Substance: SPIRONOLACTONE
     Dosage: 25 MG, ALTERNATE DAY
     Route: 048
     Dates: end: 20150511

REACTIONS (6)
  - Bacteraemia [Recovering/Resolving]
  - Urinary tract infection [Recovering/Resolving]
  - Bacterial infection [Recovering/Resolving]
  - Hyponatraemia [Recovered/Resolved]
  - Pancytopenia [Recovered/Resolved]
  - Endocarditis [Recovering/Resolving]

NARRATIVE: CASE EVENT DATE: 201505
